FAERS Safety Report 4643371-3 (Version None)
Quarter: 2005Q2

REPORT INFORMATION
  Report Type: 
  Country: None (occurrence: None)
  Receive Date: 20050421
  Receipt Date: 20050408
  Transmission Date: 20051028
  Serious: Yes (Death, Other)
  Sender: FDA-Public Use
  Company Number: 2004029509

PATIENT
  Age: 39 Year
  Sex: Female

DRUGS (4)
  1. ZOLOFT [Suspect]
     Indication: ILL-DEFINED DISORDER
     Dosage: 100 MG (100 MG, 1 IN 1 D), ORAL
     Route: 048
  2. OLANZAPINE (OLANZAPINE) [Suspect]
     Indication: ILL-DEFINED DISORDER
     Dosage: 20 MG (5 MG, 1 IN 1 D), ORAL
     Route: 048
     Dates: start: 20010101
  3. VALPROATE SODIUM [Suspect]
     Indication: ILL-DEFINED DISORDER
     Dosage: 1000 MG (500 MG, 2 IN 1 D), ORAL
     Route: 048
  4. QUETIAPINE FUMARATE [Suspect]
     Indication: SLEEP DISORDER
     Dosage: 400 MG (1 IN 1 D)

REACTIONS (4)
  - COMPLETED SUICIDE [None]
  - DRUG INTERACTION [None]
  - DRUG TOXICITY [None]
  - VOMITING [None]
